FAERS Safety Report 15901283 (Version 2)
Quarter: 2019Q1

REPORT INFORMATION
  Report Type: Spontaneous
  Country: JP (occurrence: JP)
  Receive Date: 20190201
  Receipt Date: 20190212
  Transmission Date: 20190417
  Serious: Yes (Hospitalization)
  Sender: FDA-Public Use
  Company Number: JP-PFIZER INC-2019048956

PATIENT
  Age: 74 Year
  Sex: Female

DRUGS (4)
  1. CELECOX [Suspect]
     Active Substance: CELECOXIB
     Indication: BACK PAIN
     Dosage: 200 MG, 1X/DAY
     Route: 048
     Dates: start: 20181215, end: 20181227
  2. REBAMIPIDE [Suspect]
     Active Substance: REBAMIPIDE
     Dosage: 200 MG, 1X/DAY
     Route: 048
     Dates: start: 20181215, end: 20181227
  3. MECOBALAMIN [Suspect]
     Active Substance: METHYLCOBALAMIN
     Dosage: 1500 MG/DAY, UNKNOWN FREQ.
     Route: 048
     Dates: start: 20181215, end: 20181227
  4. LYRICA [Suspect]
     Active Substance: PREGABALIN
     Dosage: 100 MG, 1X/DAY
     Route: 048
     Dates: start: 20181215, end: 20181227

REACTIONS (1)
  - Drug eruption [Recovered/Resolved]

NARRATIVE: CASE EVENT DATE: 20190107
